FAERS Safety Report 14056438 (Version 1)
Quarter: 2017Q4

REPORT INFORMATION
  Report Type: Report from Study
  Country: US (occurrence: US)
  Receive Date: 20171006
  Receipt Date: 20171006
  Transmission Date: 20180321
  Serious: Yes (Hospitalization, Other)
  Sender: FDA-Public Use
  Company Number: US-BAYER-2017-112870

PATIENT
  Age: 78 Year
  Sex: Female

DRUGS (15)
  1. STIVARGA [Suspect]
     Active Substance: REGORAFENIB
     Indication: GASTROINTESTINAL STROMAL TUMOUR
     Dosage: 160 MG, QD X21 DAYS, 7 DAYS OFF
     Route: 048
     Dates: start: 20170509
  2. PROCHLORPERAZINE. [Concomitant]
     Active Substance: PROCHLORPERAZINE
  3. OMEPRAZOLE. [Concomitant]
     Active Substance: OMEPRAZOLE
  4. AMIODARONE [Concomitant]
     Active Substance: AMIODARONE
  5. POTASSIUM [Concomitant]
     Active Substance: POTASSIUM
  6. AMLODIPINE [Concomitant]
     Active Substance: AMLODIPINE BESYLATE
  7. WARFARIN [Concomitant]
     Active Substance: WARFARIN
  8. MULTIVITAMIN [Concomitant]
     Active Substance: VITAMINS
  9. VITAMIN D3 [Concomitant]
     Active Substance: CHOLECALCIFEROL
  10. LORTAB [Concomitant]
     Active Substance: ACETAMINOPHEN\HYDROCODONE BITARTRATE
  11. LOSARTAN. [Concomitant]
     Active Substance: LOSARTAN
  12. CARVEDILOL. [Concomitant]
     Active Substance: CARVEDILOL
  13. STIVARGA [Suspect]
     Active Substance: REGORAFENIB
     Indication: GASTROINTESTINAL STROMAL TUMOUR
     Dosage: 160 MG, QD (3 WEEKS ON, THEN 1 WEEK OFF)
     Route: 048
     Dates: start: 20170513, end: 20170711
  14. PAXIL [Concomitant]
     Active Substance: PAROXETINE HYDROCHLORIDE
  15. VITAMIN B12 [Concomitant]
     Active Substance: CYANOCOBALAMIN

REACTIONS (8)
  - Arrhythmia [Recovered/Resolved]
  - Liver function test increased [Unknown]
  - Pericardial effusion [Recovered/Resolved]
  - International normalised ratio increased [None]
  - Heart rate irregular [Recovered/Resolved]
  - Atrial fibrillation [Recovered/Resolved]
  - Urinary tract infection [Recovered/Resolved]
  - Renal impairment [Unknown]

NARRATIVE: CASE EVENT DATE: 20170605
